FAERS Safety Report 6093066-7 (Version None)
Quarter: 2009Q1

REPORT INFORMATION
  Report Type: 
  Country: None (occurrence: None)
  Receive Date: 20090225
  Receipt Date: 20090220
  Transmission Date: 20090719
  Serious: Yes (Life-Threatening, Hospitalization)
  Sender: FDA-Public Use
  Company Number: GB-GILEAD-2008-0018922

PATIENT
  Sex: Female
  Weight: 83.4 kg

DRUGS (8)
  1. TRUVADA [Suspect]
     Indication: HIV INFECTION
     Route: 048
  2. RITONAVIR [Suspect]
     Indication: HIV INFECTION
     Route: 048
  3. ATAZANAVIR [Suspect]
     Indication: HIV INFECTION
     Route: 048
  4. NITROGLYCERIN [Concomitant]
     Indication: ANGINA PECTORIS
     Route: 060
  5. ASPIRIN [Concomitant]
     Indication: MYOCARDIAL INFARCTION
     Route: 048
     Dates: start: 20081025
  6. CLOPIDOGREL [Concomitant]
     Indication: MYOCARDIAL INFARCTION
     Route: 048
     Dates: start: 20081025
  7. ATORVASTATIN [Concomitant]
     Dates: start: 20081028, end: 20090119
  8. ATORVASTATIN [Concomitant]
     Route: 048
     Dates: start: 20090119

REACTIONS (1)
  - ACUTE MYOCARDIAL INFARCTION [None]
